FAERS Safety Report 4315932-2 (Version None)
Quarter: 2004Q1

REPORT INFORMATION
  Report Type: 
  Country: None (occurrence: None)
  Receive Date: 20040310
  Receipt Date: 20040220
  Transmission Date: 20041129
  Serious: Yes (Life-Threatening)
  Sender: FDA-Public Use
  Company Number: RENA-10912

PATIENT
  Age: 57 Year
  Sex: Male

DRUGS (2)
  1. PHOSBLOCK - 250MG TABLET [Suspect]
     Indication: HYPERPHOSPHATAEMIA
  2. PRECIPITATED CALCIUM CARBONATE [Concomitant]

REACTIONS (1)
  - INTESTINAL PERFORATION [None]
